FAERS Safety Report 8066690-X (Version None)
Quarter: 2012Q1

REPORT INFORMATION
  Report Type: 
  Country: None (occurrence: None)
  Receive Date: 20120124
  Receipt Date: 20120118
  Transmission Date: 20120608
  Serious: Yes (Hospitalization)
  Sender: FDA-Public Use
  Company Number: CA-BAYER-2012-003449

PATIENT
  Sex: Male

DRUGS (4)
  1. LEVITRA [Suspect]
     Dosage: 20 MG, UNK
     Dates: start: 20110101
  2. HUMULIN [INSULIN HUMAN] [Concomitant]
     Indication: TYPE 2 DIABETES MELLITUS
     Dosage: DAILY DOSE 30 U
  3. HUMALOG [Concomitant]
     Indication: TYPE 2 DIABETES MELLITUS
     Dosage: DAILY DOSE 18 U
  4. ANTIHYPERTENSIVES [Concomitant]
     Indication: HYPERTENSION

REACTIONS (2)
  - ADVERSE EVENT [None]
  - HEPATITIS [None]
